FAERS Safety Report 6976313-6 (Version None)
Quarter: 2010Q3

REPORT INFORMATION
  Report Type: 
  Country: None (occurrence: None)
  Receive Date: 20100910
  Receipt Date: 20090416
  Transmission Date: 20110219
  Serious: No
  Sender: FDA-Public Use
  Company Number: US-WYE-H09000309

PATIENT
  Sex: Female
  Weight: 52.21 kg

DRUGS (10)
  1. PRISTIQ [Suspect]
     Indication: MAJOR DEPRESSION
     Route: 048
     Dates: start: 20090201
  2. CENTRUM SILVER [Concomitant]
  3. FISH OIL, HYDROGENATED [Concomitant]
  4. FIORICET [Concomitant]
  5. PYRIDOXINE HYDROCHLORIDE [Concomitant]
  6. CALCIUM [Concomitant]
  7. ACETYLSALICYLIC ACID [Concomitant]
  8. ALPRAZOLAM [Concomitant]
  9. VITAMIN D [Concomitant]
  10. FOLIC ACID [Concomitant]

REACTIONS (13)
  - ANXIETY [None]
  - CONDITION AGGRAVATED [None]
  - CONSTIPATION [None]
  - DECREASED APPETITE [None]
  - DIARRHOEA [None]
  - FATIGUE [None]
  - FEELING COLD [None]
  - FEELING HOT [None]
  - HYPERHIDROSIS [None]
  - MIGRAINE [None]
  - SWELLING FACE [None]
  - TREMOR [None]
  - WEIGHT DECREASED [None]
